FAERS Safety Report 4569034-0 (Version None)
Quarter: 2005Q1

REPORT INFORMATION
  Report Type: 
  Country: None (occurrence: None)
  Receive Date: 20050125
  Receipt Date: 20050125
  Transmission Date: 20050727
  Serious: Yes (Disabling)
  Sender: FDA-Public Use
  Company Number: None

PATIENT
  Sex: Female
  Weight: 50.8029 kg

DRUGS (1)
  1. CIPROFLOXACIN HCL [Suspect]
     Indication: CYSTITIS
     Dosage: 1 TAB TWICE A DAY
     Dates: start: 20040928, end: 20041002

REACTIONS (8)
  - CARDIAC MURMUR [None]
  - INTERVERTEBRAL DISC PROTRUSION [None]
  - MOBILITY DECREASED [None]
  - NECK PAIN [None]
  - NERVE COMPRESSION [None]
  - PAIN [None]
  - PAIN IN EXTREMITY [None]
  - PARAESTHESIA [None]
